FAERS Safety Report 15160719 (Version 1)
Quarter: 2018Q3

REPORT INFORMATION
  Report Type: Spontaneous
  Country: US (occurrence: US)
  Receive Date: 20180621
  Receipt Date: 20180621
  Transmission Date: 20181010
  Serious: Yes (Death, Hospitalization, Disabling)
  Sender: FDA-Public Use
  Company Number: None

PATIENT
  Age: 85 Year
  Sex: Male
  Weight: 72 kg

DRUGS (9)
  1. FLONASE [Concomitant]
     Active Substance: FLUTICASONE PROPIONATE
  2. SENNA [Concomitant]
     Active Substance: SENNA LEAF\SENNOSIDES\SENNOSIDES A AND B
  3. VERAPAMIL [Concomitant]
     Active Substance: VERAPAMIL HYDROCHLORIDE
  4. TRAMADOL. [Concomitant]
     Active Substance: TRAMADOL
  5. IRON [Concomitant]
     Active Substance: IRON
  6. PROLIA [Concomitant]
     Active Substance: DENOSUMAB
  7. ZOLADEX [Suspect]
     Active Substance: GOSERELIN ACETATE
     Indication: PROSTATE CANCER
     Dosage: QUANTITY:1 INJECTION(S);OTHER FREQUENCY:EVERY 3 MONTHS;?
     Route: 058
     Dates: start: 20070301, end: 20171101
  8. CALCIUM AND D [Concomitant]
  9. COLACE [Concomitant]
     Active Substance: DOCUSATE SODIUM

REACTIONS (9)
  - Gait disturbance [None]
  - Disease complication [None]
  - Decreased appetite [None]
  - Amyotrophic lateral sclerosis [None]
  - Asthenia [None]
  - Fatigue [None]
  - Dysphagia [None]
  - Dyspnoea [None]
  - Acute respiratory failure [None]

NARRATIVE: CASE EVENT DATE: 20180101
